FAERS Safety Report 12916072 (Version 3)
Quarter: 2019Q2

REPORT INFORMATION
  Report Type: Spontaneous
  Country: US (occurrence: US)
  Receive Date: 20161104
  Receipt Date: 20190425
  Transmission Date: 20190711
  Serious: Yes (Other)
  Sender: FDA-Public Use
  Company Number: US-SA-2016SA200166

PATIENT
  Age: 51 Year
  Sex: Female
  Weight: 86 kg

DRUGS (27)
  1. DOXORUBICIN [Concomitant]
     Active Substance: DOXORUBICIN
  2. PROMETHAZINE [Concomitant]
     Active Substance: PROMETHAZINE\PROMETHAZINE HYDROCHLORIDE
  3. XANAX [Concomitant]
     Active Substance: ALPRAZOLAM
  4. ZANTAC [Concomitant]
     Active Substance: RANITIDINE HYDROCHLORIDE
  5. ATIVAN [Concomitant]
     Active Substance: LORAZEPAM
  6. HALOPERIDOL. [Concomitant]
     Active Substance: HALOPERIDOL
  7. ATENOLOL. [Concomitant]
     Active Substance: ATENOLOL
     Dosage: UNK
  8. MAGNESIUM OXIDE. [Concomitant]
     Active Substance: MAGNESIUM OXIDE
  9. HYDROCODONE/PARACETAMOL [Concomitant]
     Active Substance: ACETAMINOPHEN\HYDROCODONE BITARTRATE
  10. DOCETAXEL. [Suspect]
     Active Substance: DOCETAXEL
     Dosage: 137-143 MG
     Route: 042
     Dates: start: 20160218, end: 20160218
  11. NEOSAR [Concomitant]
     Active Substance: CYCLOPHOSPHAMIDE
  12. DEXAMETHASONE. [Concomitant]
     Active Substance: DEXAMETHASONE
  13. DESYREL [Concomitant]
     Active Substance: TRAZODONE HYDROCHLORIDE
  14. DECADRON [Concomitant]
     Active Substance: DEXAMETHASONE
  15. ZOFRAN [Concomitant]
     Active Substance: ONDANSETRON HYDROCHLORIDE
  16. PROCHLORPERAZINE. [Concomitant]
     Active Substance: PROCHLORPERAZINE
  17. ESTRACE [Concomitant]
     Active Substance: ESTRADIOL
  18. PRAVASTATIN. [Concomitant]
     Active Substance: PRAVASTATIN
  19. COMPAZINE [Concomitant]
     Active Substance: PROCHLORPERAZINE MALEATE
  20. CYTOXAN [Concomitant]
     Active Substance: CYCLOPHOSPHAMIDE
  21. DOCETAXEL. [Suspect]
     Active Substance: DOCETAXEL
     Indication: BREAST CANCER FEMALE
     Dosage: 137-143 MG
     Route: 042
     Dates: start: 20151104, end: 20151104
  22. POTASSIUM CHLORIDE. [Concomitant]
     Active Substance: POTASSIUM CHLORIDE
  23. DEXILANT [Concomitant]
     Active Substance: DEXLANSOPRAZOLE
  24. HYDROCHLOROTHIAZIDE. [Concomitant]
     Active Substance: HYDROCHLOROTHIAZIDE
     Route: 065
  25. ALPRAZOLAM. [Concomitant]
     Active Substance: ALPRAZOLAM
     Route: 065
  26. PROZAC [Concomitant]
     Active Substance: FLUOXETINE HYDROCHLORIDE
  27. FERROUS SULFATE. [Concomitant]
     Active Substance: FERROUS SULFATE

REACTIONS (5)
  - Alopecia [Recovering/Resolving]
  - Anxiety [Unknown]
  - Impaired quality of life [Unknown]
  - Pain [Unknown]
  - Emotional distress [Unknown]

NARRATIVE: CASE EVENT DATE: 201511
